FAERS Safety Report 14294905 (Version 1)
Quarter: 2017Q4

REPORT INFORMATION
  Report Type: Spontaneous
  Country: TR (occurrence: TR)
  Receive Date: 20171218
  Receipt Date: 20171218
  Transmission Date: 20180321
  Serious: Yes (Hospitalization)
  Sender: FDA-Public Use
  Company Number: TR-UCBSA-2017049788

PATIENT

DRUGS (1)
  1. BENVIDA [Suspect]
     Active Substance: LACOSAMIDE
     Indication: PSYCHOTIC DISORDER
     Dosage: 2X150 MG DAILY

REACTIONS (3)
  - Leukopenia [Unknown]
  - Hallucination, auditory [Unknown]
  - Hallucination, visual [Unknown]
